FAERS Safety Report 9044003 (Version 1)
Quarter: 2013Q1

REPORT INFORMATION
  Report Type: Report from Study
  Country: US (occurrence: US)
  Receive Date: 20130130
  Receipt Date: 20130130
  Transmission Date: 20140127
  Serious: No
  Sender: FDA-Public Use
  Company Number: US-ABBOTT-12P-163-0949298-00

PATIENT
  Age: 62 Year
  Sex: Female
  Weight: 73.09 kg

DRUGS (2)
  1. HUMIRA 40 MG/ 0.8 ML PRE-FILLED SYRINGE [Suspect]
     Indication: PSORIATIC ARTHROPATHY
     Dates: start: 20120625
  2. HYDROCHLOROTHIAZIDE/BISOPROLOL [Concomitant]
     Indication: HYPERTENSION

REACTIONS (1)
  - Pruritus generalised [Not Recovered/Not Resolved]
